FAERS Safety Report 4830143-X (Version None)
Quarter: 2005Q4

REPORT INFORMATION
  Report Type: 
  Country: None (occurrence: None)
  Receive Date: 20051115
  Receipt Date: 20051115
  Transmission Date: 20060501
  Serious: Yes (Hospitalization)
  Sender: FDA-Public Use
  Company Number: None

PATIENT
  Age: 90 Year
  Sex: Female
  Weight: 73.3 kg

DRUGS (15)
  1. WARFARIN SODIUM [Suspect]
     Indication: ANTICOAGULANT THERAPY
     Dosage: 4 MG M-F, 3 MG SA SUN
  2. IBUPROFEN [Suspect]
     Dosage: 400 MG TID PO
     Route: 048
  3. BUMEX [Concomitant]
  4. DIGOXIN [Concomitant]
  5. POTASSIUM CHLORIDE [Concomitant]
  6. SYNTHROID [Concomitant]
  7. COREG [Concomitant]
  8. DIOVAN [Concomitant]
  9. VICODIN [Concomitant]
  10. IBUPROFEN [Concomitant]
  11. COUMADIN [Concomitant]
  12. LIPITOR [Concomitant]
  13. REMERON [Concomitant]
  14. PAXIL [Concomitant]
  15. TRAZODONE [Concomitant]

REACTIONS (7)
  - DIVERTICULUM [None]
  - DRUG TOXICITY [None]
  - GASTRITIS [None]
  - GASTROINTESTINAL HAEMORRHAGE [None]
  - HYPOVOLAEMIA [None]
  - INTERNATIONAL NORMALISED RATIO INCREASED [None]
  - RENAL FAILURE ACUTE [None]
